FAERS Safety Report 4609129-6 (Version None)
Quarter: 2005Q1

REPORT INFORMATION
  Report Type: 
  Country: None (occurrence: None)
  Receive Date: 20050311
  Receipt Date: 20050302
  Transmission Date: 20050727
  Serious: Yes (Hospitalization)
  Sender: FDA-Public Use
  Company Number: USA-2005-0019154

PATIENT
  Age: 64 Year
  Sex: Male

DRUGS (2)
  1. SPECTRACEF [Suspect]
     Indication: OFF LABEL USE
     Dosage: 400 MG, BID
     Dates: start: 20050217
  2. SPECTRACEF [Suspect]
     Indication: SINUSITIS
     Dosage: 400 MG, BID
     Dates: start: 20050217

REACTIONS (4)
  - BLOOD CREATINE ABNORMAL [None]
  - BLOOD UREA INCREASED [None]
  - CLOSTRIDIUM COLITIS [None]
  - DEHYDRATION [None]
